FAERS Safety Report 9172943 (Version 1)
Quarter: 2013Q1

REPORT INFORMATION
  Report Type: Spontaneous
  Country: CA (occurrence: CA)
  Receive Date: 20130320
  Receipt Date: 20130320
  Transmission Date: 20140127
  Serious: Yes (Hospitalization, Other)
  Sender: FDA-Public Use
  Company Number: CA-AMGEN-CANSP2013005802

PATIENT
  Age: 49 Year
  Sex: Female

DRUGS (1)
  1. ENBREL [Suspect]
     Indication: TUMOUR NECROSIS FACTOR RECEPTOR-ASSOCIATED PERIODIC SYNDROME
     Dosage: 50 MG, QWK
     Dates: start: 200906, end: 20120203

REACTIONS (11)
  - Trisomy 8 [Unknown]
  - Febrile neutropenia [Unknown]
  - Pancytopenia [Not Recovered/Not Resolved]
  - Pyrexia [Unknown]
  - Blood count abnormal [Unknown]
  - Rash [Unknown]
  - Vomiting [Unknown]
  - Diarrhoea [Unknown]
  - Swelling [Unknown]
  - Panniculitis [Not Recovered/Not Resolved]
  - Urinary tract infection [Unknown]
